FAERS Safety Report 6410200-7 (Version None)
Quarter: 2009Q4

REPORT INFORMATION
  Report Type: 
  Country: None (occurrence: None)
  Receive Date: 20091022
  Receipt Date: 20091013
  Transmission Date: 20100525
  Serious: Yes (Other)
  Sender: FDA-Public Use
  Company Number: PHHY2009JP33601

PATIENT
  Age: 70 Year
  Sex: Female

DRUGS (4)
  1. NEORAL [Suspect]
     Indication: NEPHROTIC SYNDROME
     Dosage: 100 MG DAILY
     Route: 048
  2. NEORAL [Suspect]
     Dosage: 150 MG DAILY
     Route: 048
  3. NEORAL [Suspect]
     Dosage: 25 MG DAILY
     Route: 048
  4. PREDNISOLONE [Concomitant]
     Indication: NEPHROTIC SYNDROME

REACTIONS (4)
  - BLOOD LACTATE DEHYDROGENASE INCREASED [None]
  - DIABETES MELLITUS [None]
  - HEPATIC FUNCTION ABNORMAL [None]
  - IMMUNOSUPPRESSANT DRUG LEVEL INCREASED [None]
